FAERS Safety Report 6382794-1 (Version None)
Quarter: 2009Q3

REPORT INFORMATION
  Report Type: 
  Country: None (occurrence: None)
  Receive Date: 20090930
  Receipt Date: 20090917
  Transmission Date: 20100115
  Serious: Yes (Hospitalization)
  Sender: FDA-Public Use
  Company Number: DE-GENENTECH-290596

PATIENT
  Sex: Male

DRUGS (16)
  1. MABTHERA [Suspect]
     Indication: MANTLE CELL LYMPHOMA
     Dosage: 375 MG/M2, UNK
     Route: 042
     Dates: start: 20081101
  2. CYCLOPHOSPHAMIDE [Suspect]
     Indication: MANTLE CELL LYMPHOMA
     Dosage: UNK
     Route: 042
     Dates: start: 20081101, end: 20090101
  3. DOXORUBICIN HCL [Suspect]
     Indication: MANTLE CELL LYMPHOMA
     Dosage: UNK
     Route: 042
     Dates: start: 20081101, end: 20090101
  4. PREDNISONE [Suspect]
     Indication: MANTLE CELL LYMPHOMA
     Dosage: UNK
     Route: 042
     Dates: start: 20081101, end: 20090101
  5. VINCRISTINE [Suspect]
     Indication: MANTLE CELL LYMPHOMA
     Dosage: UNK
     Route: 042
     Dates: start: 20081101, end: 20090101
  6. CISPLATIN [Suspect]
     Indication: MANTLE CELL LYMPHOMA
     Dosage: UNK
     Route: 042
     Dates: start: 20090101, end: 20090301
  7. CYTARABINE [Suspect]
     Indication: MANTLE CELL LYMPHOMA
     Dosage: UNK
     Route: 042
     Dates: start: 20090101, end: 20090301
  8. DEXAMETHASONE 4MG TAB [Suspect]
     Indication: MANTLE CELL LYMPHOMA
     Dosage: UNK
     Route: 042
     Dates: start: 20090101, end: 20090301
  9. CARMUSTINE [Concomitant]
     Indication: MANTLE CELL LYMPHOMA
     Dosage: UNK
     Dates: start: 20090301
  10. CYTARABINE [Concomitant]
     Dosage: UNK
     Dates: start: 20090301
  11. DEXAMETHASONE 4MG TAB [Concomitant]
     Dosage: UNK
     Dates: start: 20090301
  12. ETOPOSIDE [Concomitant]
     Indication: MANTLE CELL LYMPHOMA
     Dosage: UNK
     Dates: start: 20090301
  13. MELPHALAN [Concomitant]
     Indication: MANTLE CELL LYMPHOMA
     Dosage: UNK
     Dates: start: 20090301
  14. AMOXICILLIN [Concomitant]
     Indication: PROPHYLAXIS
     Dosage: UNK
     Dates: start: 20090501
  15. ACYCLOVIR [Concomitant]
     Indication: PROPHYLAXIS
     Dosage: UNK
     Dates: start: 20090501
  16. SULFAMETHOXAZOLE AND TRIMETHOPRIM [Concomitant]
     Indication: PROPHYLAXIS
     Dosage: UNK
     Dates: start: 20090501

REACTIONS (3)
  - COORDINATION ABNORMAL [None]
  - PROGRESSIVE MULTIFOCAL LEUKOENCEPHALOPATHY [None]
  - SPEECH DISORDER [None]
